FAERS Safety Report 13532435 (Version 2)
Quarter: 2017Q4

REPORT INFORMATION
  Report Type: Spontaneous
  Country: US (occurrence: US)
  Receive Date: 20170510
  Receipt Date: 20171206
  Transmission Date: 20180320
  Serious: Yes (Hospitalization)
  Sender: FDA-Public Use
  Company Number: US-ORPHAN EUROPE-2020529

PATIENT
  Age: 30 Year
  Sex: Female

DRUGS (1)
  1. CYSTADANE [Suspect]
     Active Substance: BETAINE
     Indication: HOMOCYSTINURIA
     Route: 048
     Dates: start: 1997

REACTIONS (8)
  - Urinary incontinence [Unknown]
  - Vomiting [Unknown]
  - Loss of consciousness [Unknown]
  - Sleep disorder [Unknown]
  - Hyponatraemic seizure [Unknown]
  - Blood potassium decreased [Unknown]
  - Brain injury [Unknown]
  - Abnormal behaviour [Unknown]

NARRATIVE: CASE EVENT DATE: 20170420
